FAERS Safety Report 20790143 (Version 2)
Quarter: 2022Q2

REPORT INFORMATION
  Report Type: Report from Study
  Country: DE (occurrence: DE)
  Receive Date: 20220505
  Receipt Date: 20220610
  Transmission Date: 20220721
  Serious: Yes (Hospitalization)
  Sender: FDA-Public Use
  Company Number: DE-NOVARTISPH-NVSC2022DE097098

PATIENT
  Age: 9 Month
  Sex: Male

DRUGS (2)
  1. ZOLGENSMA [Suspect]
     Active Substance: ONASEMNOGENE ABEPARVOVEC-XIOI
     Indication: Spinal muscular atrophy
     Dosage: UNK, ONCE/SINGLE
     Route: 042
     Dates: start: 20210806, end: 20210806
  2. ZOLGENSMA [Suspect]
     Active Substance: ONASEMNOGENE ABEPARVOVEC-XIOI
     Dosage: UNK(WEIGHT-ADAPTED)
     Route: 042
     Dates: start: 20210806, end: 20210806

REACTIONS (10)
  - Dyspnoea [Recovered/Resolved]
  - Loss of consciousness [Recovered/Resolved]
  - Bronchitis [Recovering/Resolving]
  - Dyspnoea [Recovering/Resolving]
  - Wheezing [Recovering/Resolving]
  - Mouth haemorrhage [Recovered/Resolved]
  - Influenza like illness [Recovering/Resolving]
  - Pyrexia [Unknown]
  - Dacryostenosis acquired [Unknown]
  - Weight decreased [Unknown]

NARRATIVE: CASE EVENT DATE: 20220421
